FAERS Safety Report 9334379 (Version 1)
Quarter: 2013Q2

REPORT INFORMATION
  Report Type: Spontaneous
  Country: CA (occurrence: None)
  Receive Date: 20130604
  Receipt Date: 20130604
  Transmission Date: 20140414
  Serious: No
  Sender: FDA-Public Use
  Company Number: 2013P1006417

PATIENT
  Age: 20 Year
  Sex: Male

DRUGS (4)
  1. DOXYCYCLINE [Suspect]
     Indication: INFECTION PROPHYLAXIS
  2. TRIMETHOPRIM-SULFAMETHOXAZOLE [Suspect]
     Indication: INFECTION PROPHYLAXIS
  3. CEFTRIAXONE [Concomitant]
  4. VANCOMYCIN [Concomitant]

REACTIONS (15)
  - Pyrexia [None]
  - Myalgia [None]
  - Aspartate aminotransferase increased [None]
  - Alanine aminotransferase increased [None]
  - Renal failure [None]
  - Septic shock [None]
  - Respiratory failure [None]
  - Disseminated intravascular coagulation [None]
  - Splenic infarction [None]
  - Lymphadenopathy [None]
  - Leukocytosis [None]
  - Lymphocytosis [None]
  - Eosinophilia [None]
  - Drug reaction with eosinophilia and systemic symptoms [None]
  - Stevens-Johnson syndrome [None]
